FAERS Safety Report 7626533-2 (Version None)
Quarter: 2011Q3

REPORT INFORMATION
  Report Type: 
  Country: None (occurrence: None)
  Receive Date: 20110721
  Receipt Date: 20110630
  Transmission Date: 20111222
  Serious: Yes (Hospitalization)
  Sender: FDA-Public Use
  Company Number: US-GLAXOSMITHKLINE-A0840334A

PATIENT
  Sex: Male
  Weight: 125 kg

DRUGS (10)
  1. GLUCOVANCE [Concomitant]
  2. ZOCOR [Concomitant]
  3. WARFARIN SODIUM [Concomitant]
  4. MONOPRIL [Concomitant]
  5. NEURONTIN [Concomitant]
  6. NEXIUM [Concomitant]
  7. AVANDIA [Suspect]
     Indication: DIABETES MELLITUS
     Dosage: 4MG PER DAY
     Route: 048
     Dates: start: 20041102, end: 20070901
  8. LANTUS [Concomitant]
  9. VERAPAMIL [Concomitant]
  10. AMITRIPTYLINE HCL [Concomitant]

REACTIONS (4)
  - CEREBROVASCULAR ACCIDENT [None]
  - MUSCULAR WEAKNESS [None]
  - MYOCARDIAL INFARCTION [None]
  - ARRHYTHMIA [None]
